FAERS Safety Report 11681495 (Version 1)
Quarter: 2015Q4

REPORT INFORMATION
  Report Type: Spontaneous
  Country: US (occurrence: None)
  Receive Date: 20151027
  Receipt Date: 20151027
  Transmission Date: 20160304
  Serious: Yes (Hospitalization)
  Sender: FDA-Public Use
  Company Number: CA-ALSI-201500263

PATIENT
  Age: 86 Year
  Sex: Female

DRUGS (1)
  1. OXYGEN USP OXYGEN [Suspect]
     Active Substance: OXYGEN
     Indication: PRODUCT USED FOR UNKNOWN INDICATION
     Dosage: RESPIRATORY
     Route: 055

REACTIONS (3)
  - Intentional product misuse [None]
  - Thermal burn [None]
  - Wrong technique in product usage process [None]
